FAERS Safety Report 9515379 (Version 2)
Quarter: 2013Q4

REPORT INFORMATION
  Report Type: Spontaneous
  Country: JP (occurrence: JP)
  Receive Date: 20130911
  Receipt Date: 20131022
  Transmission Date: 20140711
  Serious: Yes (Hospitalization, Other)
  Sender: FDA-Public Use
  Company Number: PHHY2013JP099032

PATIENT
  Age: 81 Year
  Sex: Male

DRUGS (8)
  1. ONBREZ [Suspect]
     Indication: CHRONIC OBSTRUCTIVE PULMONARY DISEASE
     Dosage: 150 UG, UNK
  2. UNIPHYLLA [Concomitant]
     Dosage: 200 MG, UNK
     Route: 048
  3. MUCODYNE [Concomitant]
     Dosage: 500 MG, UNK
     Route: 048
  4. SEREVENT [Concomitant]
     Dosage: 50 UG, UNK
  5. SEREVENT [Concomitant]
     Dosage: 25 UNK, UNK
  6. ATROVENT [Concomitant]
     Dosage: 1 DF, TID
  7. EXELON [Concomitant]
     Dosage: UNK UKN, UNK
  8. SULTANOL [Concomitant]
     Dosage: PRN

REACTIONS (2)
  - Hyperventilation [Unknown]
  - Gait disturbance [Recovering/Resolving]
